FAERS Safety Report 17139099 (Version 1)
Quarter: 2019Q4

REPORT INFORMATION
  Report Type: Spontaneous
  Country: US (occurrence: US)
  Receive Date: 20191211
  Receipt Date: 20191211
  Transmission Date: 20200122
  Serious: No
  Sender: FDA-Public Use
  Company Number: US-JNJFOC-20191206347

PATIENT
  Age: 37 Year
  Sex: Male
  Weight: 102.15 kg

DRUGS (1)
  1. ZYRTEC [Suspect]
     Active Substance: CETIRIZINE HYDROCHLORIDE
     Indication: SEASONAL ALLERGY
     Dosage: LAST DOSE ADMIN: 03-DEC-2019?1 DOSE AT AROUND 4 AM AND 1 DOSE IN THE AFTERNOON
     Route: 048
     Dates: start: 20191203

REACTIONS (1)
  - Accidental overdose [Unknown]

NARRATIVE: CASE EVENT DATE: 201912
